FAERS Safety Report 9097160 (Version 2)
Quarter: 2013Q2

REPORT INFORMATION
  Report Type: Spontaneous
  Country: AU (occurrence: AU)
  Receive Date: 20130212
  Receipt Date: 20130515
  Transmission Date: 20140414
  Serious: Yes (Other)
  Sender: FDA-Public Use
  Company Number: AU-GILEAD-2013-0069640

PATIENT
  Age: 67 Year
  Sex: Female

DRUGS (8)
  1. AMBRISENTAN [Suspect]
     Indication: PULMONARY ARTERIAL HYPERTENSION
     Dosage: 10 MG, UNK
     Route: 048
     Dates: start: 20101105
  2. SILDENAFIL [Concomitant]
     Indication: PULMONARY ARTERIAL HYPERTENSION
     Dosage: 40MG THREE TIMES PER DAY
     Dates: start: 2010
  3. WARFARIN [Concomitant]
     Indication: PULMONARY EMBOLISM
     Dates: start: 2009
  4. FUROSEMIDE [Concomitant]
     Indication: RIGHT VENTRICULAR FAILURE
     Dosage: 80MG TWICE PER DAY
     Dates: start: 2011
  5. FUROSEMIDE [Concomitant]
     Indication: RIGHT VENTRICULAR FAILURE
  6. DIGOXIN [Concomitant]
     Indication: RIGHT VENTRICULAR DYSFUNCTION
     Dates: start: 2011
  7. SPIRONOLACTONE [Concomitant]
     Indication: RIGHT VENTRICULAR FAILURE
     Dates: start: 2011
  8. SLOW K [Concomitant]
     Indication: ELECTROLYTE SUBSTITUTION THERAPY
     Dosage: 600MG TWICE PER DAY
     Dates: start: 2011

REACTIONS (9)
  - Systemic sclerosis [Not Recovered/Not Resolved]
  - Systemic sclerosis [Not Recovered/Not Resolved]
  - Pulmonary hypertension [Not Recovered/Not Resolved]
  - Pericardial effusion [Not Recovered/Not Resolved]
  - Catheterisation cardiac [Not Recovered/Not Resolved]
  - Walking distance test abnormal [Not Recovered/Not Resolved]
  - Dilatation ventricular [Not Recovered/Not Resolved]
  - Right ventricular dysfunction [Not Recovered/Not Resolved]
  - Drug ineffective [Unknown]
